FAERS Safety Report 13755187 (Version 3)
Quarter: 2018Q2

REPORT INFORMATION
  Report Type: Report from Study
  Country: US (occurrence: US)
  Receive Date: 20170714
  Receipt Date: 20180518
  Transmission Date: 20180711
  Serious: Yes (Death, Other)
  Sender: FDA-Public Use
  Company Number: US-CIPLA LTD.-2017US12095

PATIENT

DRUGS (10)
  1. CAPECITABINE. [Suspect]
     Active Substance: CAPECITABINE
     Indication: MALIGNANT NEOPLASM PROGRESSION
  2. CARBOPLATIN. [Suspect]
     Active Substance: CARBOPLATIN
     Indication: MALIGNANT NEOPLASM PROGRESSION
     Dosage: UNK
     Route: 065
  3. PACLITAXEL. [Suspect]
     Active Substance: PACLITAXEL
     Indication: MALIGNANT NEOPLASM PROGRESSION
     Dosage: UNK
     Route: 065
  4. CYCLOPHOSPHAMIDE. [Suspect]
     Active Substance: CYCLOPHOSPHAMIDE
     Indication: NEOPLASM OF THYMUS
     Dosage: 6 CYCLES
     Route: 065
  5. DOVITINIB [Suspect]
     Active Substance: DOVITINIB LACTATE
     Indication: PRODUCT USED FOR UNKNOWN INDICATION
     Dosage: UNK
     Route: 065
  6. DOXORUBICIN [Suspect]
     Active Substance: DOXORUBICIN
     Indication: NEOPLASM OF THYMUS
     Dosage: 6 CYCLES
     Route: 065
  7. CELECOXIB. [Suspect]
     Active Substance: CELECOXIB
     Indication: NEOPLASM OF THYMUS
     Dosage: 200 MG, BID, DAY 1 TO DAY 14, EVERY 21 DAYS
     Route: 048
  8. CELECOXIB. [Suspect]
     Active Substance: CELECOXIB
     Indication: MALIGNANT NEOPLASM PROGRESSION
  9. CAPECITABINE. [Suspect]
     Active Substance: CAPECITABINE
     Indication: NEOPLASM OF THYMUS
     Dosage: 1000 MG/M, BID, DAY 1 TO DAY 14, EVERY 21 DAYS
     Route: 048
  10. CISPLATIN. [Suspect]
     Active Substance: CISPLATIN
     Indication: NEOPLASM OF THYMUS
     Dosage: 6 CYCLES
     Route: 065

REACTIONS (2)
  - Death [Fatal]
  - Malignant neoplasm progression [Unknown]
